FAERS Safety Report 23100148 (Version 1)
Quarter: 2023Q4

REPORT INFORMATION
  Report Type: Other
  Country: US (occurrence: None)
  Receive Date: 20231024
  Receipt Date: 20231024
  Transmission Date: 20240109
  Serious: No
  Sender: FDA-Public Use
  Company Number: US-ROCHE-3443958

PATIENT
  Age: 23 Year
  Sex: Female

DRUGS (1)
  1. OCREVUS [Suspect]
     Active Substance: OCRELIZUMAB
     Indication: Relapsing multiple sclerosis
     Dosage: 300MG IV INFUSION DAY 1 AND DAY 15, 600MG IV INFUSION EVERY 6 MONTHS
     Route: 042
     Dates: start: 202002

REACTIONS (1)
  - COVID-19 [Recovered/Resolved]
